FAERS Safety Report 13851958 (Version 1)
Quarter: 2017Q3

REPORT INFORMATION
  Report Type: Spontaneous
  Country: DE (occurrence: DE)
  Receive Date: 20170809
  Receipt Date: 20170809
  Transmission Date: 20171127
  Serious: Yes (Other)
  Sender: FDA-Public Use
  Company Number: PHHY2017DE115412

PATIENT
  Sex: Female

DRUGS (3)
  1. HERCEPTIN [Concomitant]
     Active Substance: TRASTUZUMAB
     Indication: PRODUCT USED FOR UNKNOWN INDICATION
     Route: 065
  2. ZOMETA [Suspect]
     Active Substance: ZOLEDRONIC ACID
     Indication: PRODUCT USED FOR UNKNOWN INDICATION
     Dosage: 4 MG, QW3 (EVERY 3 WEEKS)
     Route: 041
     Dates: start: 201505
  3. ZOMETA [Suspect]
     Active Substance: ZOLEDRONIC ACID
     Dosage: 2 MG OR 4 MG ,QW3 (EVERY 3 WEEKS)
     Route: 041

REACTIONS (7)
  - Dizziness [Unknown]
  - Tachycardia [Unknown]
  - Myalgia [Unknown]
  - Bradycardia [Unknown]
  - Neck pain [Unknown]
  - Bone pain [Unknown]
  - Headache [Unknown]
